FAERS Safety Report 4733454-1 (Version None)
Quarter: 2005Q3

REPORT INFORMATION
  Report Type: 
  Country: None (occurrence: None)
  Receive Date: 20050801
  Receipt Date: 20050718
  Transmission Date: 20060218
  Serious: Yes (Hospitalization, Other)
  Sender: FDA-Public Use
  Company Number: HQWYE257219JUL05

PATIENT
  Age: 85 Year
  Sex: Female

DRUGS (1)
  1. TRANGOREX                        (AMIODARONE) [Suspect]
     Indication: ARRHYTHMIA
     Dosage: 300 MG ONCE, INTRAVENOUS
     Route: 042
     Dates: start: 20050407, end: 20050407

REACTIONS (1)
  - HEPATITIS CHOLESTATIC [None]
